FAERS Safety Report 9891432 (Version 1)
Quarter: 2014Q1

REPORT INFORMATION
  Report Type: Spontaneous
  Country: GB (occurrence: None)
  Receive Date: 20140210
  Receipt Date: 20140210
  Transmission Date: 20141002
  Serious: Yes (Hospitalization)
  Sender: FDA-Public Use
  Company Number: 2014030501

PATIENT
  Age: 36 Year
  Sex: Male

DRUGS (2)
  1. FRAGMIN [Suspect]
     Indication: PROPHYLAXIS
     Route: 058
     Dates: start: 20140102, end: 20140106
  2. IBUPROFEN [Concomitant]

REACTIONS (4)
  - Rash [None]
  - Rash generalised [None]
  - Paraesthesia oral [None]
  - Dyspnoea [None]
